FAERS Safety Report 10142444 (Version 3)
Quarter: 2014Q4

REPORT INFORMATION
  Report Type: Spontaneous
  Country: JP (occurrence: JP)
  Receive Date: 20140430
  Receipt Date: 20141024
  Transmission Date: 20150528
  Serious: Yes (Hospitalization)
  Sender: FDA-Public Use
  Company Number: JP-ROCHE-1387971

PATIENT
  Age: 79 Year
  Sex: Male
  Weight: 55 kg

DRUGS (10)
  1. ALFAROL [Concomitant]
     Active Substance: ALFACALCIDOL
     Indication: CHRONIC KIDNEY DISEASE
     Dosage: THE BEGINNING OF DOSAGE DAY: IT IS ABOUT FRONT FACILITIES MARCH OF THE FORMULA.
     Route: 048
  2. PLAVIX [Concomitant]
     Active Substance: CLOPIDOGREL BISULFATE
     Indication: CORONARY ARTERY BYPASS
     Dosage: THE BEGINNING OF DOSAGE DAY: IT IS ABOUT FRONT FACILITIES MARCH OF THE FORMULA.
     Route: 048
  3. MIRCERA [Suspect]
     Active Substance: PEGZEREPOETIN ALFA
     Indication: NEPHROGENIC ANAEMIA
     Route: 042
     Dates: end: 20140404
  4. BAYASPIRIN [Concomitant]
     Active Substance: ASPIRIN
     Indication: CORONARY ARTERY BYPASS
     Dosage: THE BEGINNING OF DOSAGE DAY: IT IS ABOUT FRONT FACILITIES MARCH OF THE FORMULA.
     Route: 048
  5. CARBOCISTEINE [Concomitant]
     Active Substance: CARBOCYSTEINE
     Indication: DIFFUSE PANBRONCHIOLITIS
     Dosage: THE BEGINNING OF DOSAGE DAY: IT IS ABOUT FRONT FACILITIES MARCH OF THE FORMULA.
     Route: 048
  6. REBAMIPIDE [Concomitant]
     Active Substance: REBAMIPIDE
     Indication: GASTRIC ULCER
     Dosage: THE BEGINNING OF DOSAGE DAY: IT IS ABOUT FRONT FACILITIES MARCH OF THE FORMULA.
     Route: 048
  7. SIGMART [Concomitant]
     Active Substance: NICORANDIL
     Indication: CORONARY ARTERY BYPASS
     Dosage: THE BEGINNING OF DOSAGE DAY: IT IS ABOUT FRONT FACILITIES MARCH OF THE FORMULA.
     Route: 048
  8. ZETIA [Concomitant]
     Active Substance: EZETIMIBE
     Indication: CORONARY ARTERY BYPASS
     Dosage: THE BEGINNING OF DOSAGE DAY: IT IS ABOUT FRONT FACILITIES MARCH OF THE FORMULA.
     Route: 048
  9. THYRADIN-S [Concomitant]
     Active Substance: LEVOTHYROXINE
     Indication: HYPOTHYROIDISM
     Dosage: THE BEGINNING OF DOSAGE DAY: IT IS ABOUT FRONT FACILITIES MARCH OF THE FORMULA.
     Route: 048
  10. MICARDIS [Concomitant]
     Active Substance: TELMISARTAN
     Route: 048

REACTIONS (2)
  - Chest pain [None]
  - Aplasia pure red cell [Recovered/Resolved]

NARRATIVE: CASE EVENT DATE: 20140411
